FAERS Safety Report 19631168 (Version 1)
Quarter: 2021Q3

REPORT INFORMATION
  Report Type: Spontaneous
  Country: TW (occurrence: TW)
  Receive Date: 20210728
  Receipt Date: 20210728
  Transmission Date: 20211014
  Serious: Yes (Death)
  Sender: FDA-Public Use
  Company Number: TW-PFIZER INC-2021890098

PATIENT
  Sex: Male

DRUGS (1)
  1. LORVIQUA [Suspect]
     Active Substance: LORLATINIB
     Dosage: 50 MG, DAILY (2 TABLETS OF 25 MG A DAY)
     Route: 048
     Dates: start: 20200619

REACTIONS (1)
  - Death [Fatal]
